FAERS Safety Report 24680836 (Version 1)
Quarter: 2024Q4

REPORT INFORMATION
  Report Type: Spontaneous
  Country: ZA (occurrence: ZA)
  Receive Date: 20241129
  Receipt Date: 20241129
  Transmission Date: 20250114
  Serious: Yes (Death, Other)
  Sender: ALEXION PHARMACEUTICALS
  Company Number: ZA-AstraZeneca-CH-00757023A

PATIENT
  Age: 79 Year

DRUGS (40)
  1. DAPAGLIFLOZIN PROPANEDIOL [Suspect]
     Active Substance: DAPAGLIFLOZIN PROPANEDIOL
     Dosage: UNK
  2. DAPAGLIFLOZIN PROPANEDIOL [Suspect]
     Active Substance: DAPAGLIFLOZIN PROPANEDIOL
     Dosage: UNK
  3. DAPAGLIFLOZIN PROPANEDIOL [Suspect]
     Active Substance: DAPAGLIFLOZIN PROPANEDIOL
     Dosage: UNK
  4. DAPAGLIFLOZIN PROPANEDIOL [Suspect]
     Active Substance: DAPAGLIFLOZIN PROPANEDIOL
     Dosage: UNK
  5. SPIRACTIN [Concomitant]
  6. SPIRACTIN [Concomitant]
  7. SPIRACTIN [Concomitant]
  8. SPIRACTIN [Concomitant]
  9. FUROSEMIDE [Concomitant]
     Active Substance: FUROSEMIDE
  10. FUROSEMIDE [Concomitant]
     Active Substance: FUROSEMIDE
  11. FUROSEMIDE [Concomitant]
     Active Substance: FUROSEMIDE
  12. FUROSEMIDE [Concomitant]
     Active Substance: FUROSEMIDE
  13. CLOBAZAM [Concomitant]
     Active Substance: CLOBAZAM
  14. CLOBAZAM [Concomitant]
     Active Substance: CLOBAZAM
  15. CLOBAZAM [Concomitant]
     Active Substance: CLOBAZAM
  16. CLOBAZAM [Concomitant]
     Active Substance: CLOBAZAM
  17. ESCITALOPRAM [Concomitant]
     Active Substance: ESCITALOPRAM OXALATE
  18. ESCITALOPRAM [Concomitant]
     Active Substance: ESCITALOPRAM OXALATE
  19. ESCITALOPRAM [Concomitant]
     Active Substance: ESCITALOPRAM OXALATE
  20. ESCITALOPRAM [Concomitant]
     Active Substance: ESCITALOPRAM OXALATE
  21. MEZIBE [Concomitant]
  22. MEZIBE [Concomitant]
  23. MEZIBE [Concomitant]
  24. MEZIBE [Concomitant]
  25. SILODOSIN [Concomitant]
     Active Substance: SILODOSIN
  26. SILODOSIN [Concomitant]
     Active Substance: SILODOSIN
  27. SILODOSIN [Concomitant]
     Active Substance: SILODOSIN
  28. SILODOSIN [Concomitant]
     Active Substance: SILODOSIN
  29. METFORMIN HYDROCHLORIDE [Concomitant]
     Active Substance: METFORMIN HYDROCHLORIDE
  30. METFORMIN HYDROCHLORIDE [Concomitant]
     Active Substance: METFORMIN HYDROCHLORIDE
  31. METFORMIN HYDROCHLORIDE [Concomitant]
     Active Substance: METFORMIN HYDROCHLORIDE
  32. METFORMIN HYDROCHLORIDE [Concomitant]
     Active Substance: METFORMIN HYDROCHLORIDE
  33. PANTOPRAZOLE SODIUM [Concomitant]
     Active Substance: PANTOPRAZOLE SODIUM
  34. PANTOPRAZOLE SODIUM [Concomitant]
     Active Substance: PANTOPRAZOLE SODIUM
  35. PANTOPRAZOLE SODIUM [Concomitant]
     Active Substance: PANTOPRAZOLE SODIUM
  36. PANTOPRAZOLE SODIUM [Concomitant]
     Active Substance: PANTOPRAZOLE SODIUM
  37. COLCHICINE [Concomitant]
     Active Substance: COLCHICINE
  38. COLCHICINE [Concomitant]
     Active Substance: COLCHICINE
  39. COLCHICINE [Concomitant]
     Active Substance: COLCHICINE
  40. COLCHICINE [Concomitant]
     Active Substance: COLCHICINE

REACTIONS (1)
  - Death [Fatal]
